FAERS Safety Report 14738258 (Version 2)
Quarter: 2018Q2

REPORT INFORMATION
  Report Type: Report from Study
  Country: JP (occurrence: JP)
  Receive Date: 20180409
  Receipt Date: 20180423
  Transmission Date: 20180711
  Serious: Yes (Hospitalization)
  Sender: FDA-Public Use
  Company Number: JP-PFIZER INC-2018130683

PATIENT
  Age: 66 Year
  Sex: Female
  Weight: 45.6 kg

DRUGS (9)
  1. AMLODIPINE [Concomitant]
     Active Substance: AMLODIPINE BESYLATE
     Indication: HYPERTENSION
     Dosage: 1.25 MG, 1X/DAY
     Route: 048
     Dates: start: 201711
  2. BENET [Concomitant]
     Active Substance: RISEDRONATE SODIUM
     Indication: OSTEOPOROSIS
     Dosage: 75 MG, MONTHLY
     Route: 048
     Dates: start: 2016
  3. METHYLPREDNISOLONE. [Suspect]
     Active Substance: METHYLPREDNISOLONE
     Dosage: UNK
  4. LYRICA [Concomitant]
     Active Substance: PREGABALIN
     Indication: TROPICAL SPASTIC PARESIS
     Dosage: 50 MG, 2X/DAY
     Route: 048
     Dates: start: 2012
  5. KAKKONTO /07985901/ [Concomitant]
     Active Substance: HERBALS
     Indication: TROPICAL SPASTIC PARESIS
     Dosage: 75 MG, MONTHLY
     Route: 048
     Dates: start: 2016
  6. NEW LECICARBON [Concomitant]
     Active Substance: SODIUM BICARBONATE\SODIUM PHOSPHATE, MONOBASIC
     Indication: CONSTIPATION
     Dosage: UNK UNK, AS NEEDED
     Route: 054
     Dates: start: 2016
  7. EDIROL [Concomitant]
     Active Substance: ELDECALCITOL
     Indication: TROPICAL SPASTIC PARESIS
     Dosage: 0.75 UG, 1X/DAY
     Route: 048
     Dates: start: 2014
  8. PREDNISOLONE. [Suspect]
     Active Substance: PREDNISOLONE
     Dosage: UNK, 1X/DAY AFTER BREAKFAST
     Route: 048
     Dates: start: 20180131
  9. LIORESAL [Concomitant]
     Active Substance: BACLOFEN
     Indication: TROPICAL SPASTIC PARESIS
     Dosage: 20 MG, 2X/DAY
     Route: 048
     Dates: start: 2012

REACTIONS (1)
  - Herpes zoster [Recovered/Resolved]

NARRATIVE: CASE EVENT DATE: 20180321
